FAERS Safety Report 18729339 (Version 1)
Quarter: 2021Q1

REPORT INFORMATION
  Report Type: Spontaneous
  Country: IT (occurrence: IT)
  Receive Date: 20210112
  Receipt Date: 20210112
  Transmission Date: 20210419
  Serious: Yes (Other)
  Sender: FDA-Public Use
  Company Number: IT-USWM, LLC-UWM202012-000067

PATIENT
  Age: 14 Month
  Sex: Male

DRUGS (3)
  1. NADOLOL. [Suspect]
     Active Substance: NADOLOL
     Indication: ELECTROCARDIOGRAM QT PROLONGED
  2. PROPRANOLOL [Concomitant]
     Active Substance: PROPRANOLOL HYDROCHLORIDE
     Indication: ELECTROCARDIOGRAM QT PROLONGED
     Dosage: NOT PROVIDED
  3. NADOLOL. [Suspect]
     Active Substance: NADOLOL

REACTIONS (2)
  - Hypoglycaemia [Recovered/Resolved]
  - Product use in unapproved indication [Unknown]
